FAERS Safety Report 8962265 (Version 3)
Quarter: 2017Q4

REPORT INFORMATION
  Report Type: Report from Study
  Country: CA (occurrence: CA)
  Receive Date: 20121211
  Receipt Date: 20171102
  Transmission Date: 20180321
  Serious: Yes (Hospitalization)
  Sender: FDA-Public Use
  Company Number: CA-ASTELLAS-2012US011983

PATIENT

DRUGS (2)
  1. FORETINIB [Suspect]
     Active Substance: FORETINIB
     Indication: NON-SMALL CELL LUNG CANCER
     Dosage: UNK, UNKNOWN FREQ. STARTED ON DAY 14 CYCLE 1; DOSE DELAYED,
     Route: 048
  2. ERLOTINIB [Suspect]
     Active Substance: ERLOTINIB
     Indication: NON-SMALL CELL LUNG CANCER
     Dosage: UNK, UNKNOWN FREQ. STARTED ON DAY 1 CYCLE 1; DOSE DELAYED
     Route: 048

REACTIONS (4)
  - Fatigue [Unknown]
  - Diarrhoea [Unknown]
  - Neck pain [Unknown]
  - Mucosal inflammation [Unknown]
